FAERS Safety Report 10177856 (Version 2)
Quarter: 2014Q2

REPORT INFORMATION
  Report Type: Spontaneous
  Country: AT (occurrence: AT)
  Receive Date: 20140516
  Receipt Date: 20140516
  Transmission Date: 20141212
  Serious: Yes (Other)
  Sender: FDA-Public Use
  Company Number: AT-AMGEN GMBH-AUTSP2014030397

PATIENT
  Age: 74 Year
  Sex: Female

DRUGS (1)
  1. XGEVA [Suspect]
     Indication: METASTASES TO BONE
     Dosage: UNK
     Route: 065

REACTIONS (8)
  - Paralysis [Unknown]
  - Hypoaesthesia oral [Unknown]
  - Oral pain [Unknown]
  - Pain in jaw [Unknown]
  - Paraesthesia oral [Unknown]
  - Blepharospasm [Unknown]
  - Nerve injury [Unknown]
  - Tooth extraction [Unknown]
